FAERS Safety Report 23867651 (Version 1)
Quarter: 2024Q2

REPORT INFORMATION
  Report Type: Spontaneous
  Country: CA (occurrence: CA)
  Receive Date: 20240517
  Receipt Date: 20240517
  Transmission Date: 20240716
  Serious: Yes (Hospitalization)
  Sender: FDA-Public Use
  Company Number: CA-TEVA-VS-3183455

PATIENT
  Age: 90 Year
  Sex: Female

DRUGS (1)
  1. PREDNISONE [Suspect]
     Active Substance: PREDNISONE
     Indication: Delirium
     Dosage: DESCRIPTION: TEVA-PREDNISONE
     Route: 065

REACTIONS (1)
  - Delirium [Unknown]
